FAERS Safety Report 8272614 (Version 3)
Quarter: 2012Q4

REPORT INFORMATION
  Report Type: 
  Country: DE (occurrence: DE)
  Receive Date: 20111202
  Receipt Date: 20121008
  Transmission Date: 20130627
  Serious: Yes (Death, Life-Threatening, Other)
  Sender: FDA-Public Use
  Company Number: DE-B.I. PHARMACEUTICALS,INC./RIDGEFIELD-2011-DE-06599DE

PATIENT
  Age: 88 Year
  Sex: Male
  Weight: 75 kg

DRUGS (1)
  1. PRADAXA [Suspect]
     Indication: ATRIAL FIBRILLATION
     Dosage: 300 mg
     Route: 048
     Dates: start: 20111110, end: 20111114

REACTIONS (4)
  - Gastrointestinal haemorrhage [Fatal]
  - Mallory-Weiss syndrome [Fatal]
  - Shock [Fatal]
  - Brain injury [Fatal]
